FAERS Safety Report 7442506-7 (Version None)
Quarter: 2011Q2

REPORT INFORMATION
  Report Type: 
  Country: None (occurrence: None)
  Receive Date: 20110428
  Receipt Date: 20110419
  Transmission Date: 20111010
  Serious: Yes (Life-Threatening, Other)
  Sender: FDA-Public Use
  Company Number: JP-ROCHE-773035

PATIENT
  Sex: Female
  Weight: 37 kg

DRUGS (5)
  1. LOXONIN [Concomitant]
     Dosage: NOTE: TAKEN AS NEEDED.
     Route: 048
  2. ACTEMRA [Suspect]
     Indication: JUVENILE ARTHRITIS
     Route: 041
     Dates: start: 20050808, end: 20101222
  3. TAKEPRON [Concomitant]
     Route: 048
  4. DEPAKENE [Concomitant]
     Dosage: NOTE: 100MG X 1, 300MG X 2.NAME: DEPAKENE-R(SODIUM VALPROATE).
     Route: 048
     Dates: start: 20060101
  5. PREDNISOLONE [Suspect]
     Indication: JUVENILE ARTHRITIS
     Dosage: DOSE FORM: PERORAL AGENT.
     Route: 048

REACTIONS (5)
  - DISSEMINATED INTRAVASCULAR COAGULATION [None]
  - SEPTIC SHOCK [None]
  - HISTIOCYTOSIS HAEMATOPHAGIC [None]
  - RENAL FAILURE [None]
  - ENDOCARDITIS [None]
